FAERS Safety Report 10186522 (Version 1)
Quarter: 2014Q2

REPORT INFORMATION
  Report Type: Spontaneous
  Country: GB (occurrence: GB)
  Receive Date: 20140521
  Receipt Date: 20140521
  Transmission Date: 20141212
  Serious: Yes (Other)
  Sender: FDA-Public Use
  Company Number: GB-B.I. PHARMACEUTICALS,INC./RIDGEFIELD-2014-BI-21857UK

PATIENT
  Age: 64 Year
  Sex: Male
  Weight: 61 kg

DRUGS (5)
  1. LINAGLIPTIN [Suspect]
     Indication: PRODUCT USED FOR UNKNOWN INDICATION
     Route: 065
     Dates: start: 20140228
  2. GLIPIZIDE [Concomitant]
     Route: 065
     Dates: start: 20140106, end: 20140303
  3. METFORMIN [Concomitant]
     Route: 065
     Dates: start: 20140106, end: 20140303
  4. OMEPRAZOLE [Concomitant]
     Route: 065
     Dates: start: 20140106, end: 20140428
  5. PRAVASTATIN [Concomitant]
     Route: 065
     Dates: start: 20140106, end: 20140501

REACTIONS (2)
  - Vision blurred [Recovered/Resolved]
  - Malaise [Unknown]
